FAERS Safety Report 17575061 (Version 2)
Quarter: 2020Q1

REPORT INFORMATION
  Report Type: Spontaneous
  Country: CA (occurrence: CA)
  Receive Date: 20200324
  Receipt Date: 20200327
  Transmission Date: 20200409
  Serious: Yes (Disabling)
  Sender: FDA-Public Use
  Company Number: CA-TEVA-2020-CA-1212020

PATIENT
  Age: 71 Year
  Sex: Female
  Weight: 82 kg

DRUGS (1)
  1. CEFADROXIL. [Suspect]
     Active Substance: CEFADROXIL
     Indication: CELLULITIS
     Dosage: 1000 MILLIGRAM DAILY;
     Route: 048

REACTIONS (2)
  - Ageusia [Not Recovered/Not Resolved]
  - Tongue discolouration [Not Recovered/Not Resolved]
